FAERS Safety Report 19115445 (Version 1)
Quarter: 2021Q2

REPORT INFORMATION
  Report Type: Spontaneous
  Country: CA (occurrence: CA)
  Receive Date: 20210409
  Receipt Date: 20210409
  Transmission Date: 20210717
  Serious: Yes (Life-Threatening)
  Sender: FDA-Public Use
  Company Number: CA-PFIZER INC-2021382363

PATIENT
  Age: 10 Year
  Sex: Female
  Weight: 26 kg

DRUGS (41)
  1. DOXORUBICIN HCL [Suspect]
     Active Substance: DOXORUBICIN HYDROCHLORIDE
     Indication: EPSTEIN-BARR VIRUS ASSOCIATED LYMPHOPROLIFERATIVE DISORDER
     Dosage: 50 MG
     Route: 042
  2. ANTILYMPHOCYTE IMMUNOGLOBULIN (RABBIT) [Suspect]
     Active Substance: LAPINE T-LYMPHOCYTE IMMUNE GLOBULIN
     Indication: COMBINED IMMUNODEFICIENCY
     Dosage: 65 MG
     Route: 042
  3. CICLOSPORIN [Concomitant]
     Active Substance: CYCLOSPORINE
  4. MYCOPHENOLATE MOFETIL. [Concomitant]
     Active Substance: MYCOPHENOLATE MOFETIL
  5. ONDANSETRON [Concomitant]
     Active Substance: ONDANSETRON
  6. URSODEOXYCHOLIC ACID [Concomitant]
     Active Substance: URSODIOL
  7. DOXORUBICIN HCL [Suspect]
     Active Substance: DOXORUBICIN HYDROCHLORIDE
     Dosage: 50 MG
     Route: 042
  8. FLUDARABINE PHOSPHATE. [Suspect]
     Active Substance: FLUDARABINE PHOSPHATE
     Indication: COMBINED IMMUNODEFICIENCY
     Dosage: 30 MG
     Route: 042
  9. CYCLOPHOSPHAMIDE. [Suspect]
     Active Substance: CYCLOPHOSPHAMIDE
     Dosage: 750 MG
     Route: 042
  10. ALLOPURINOL. [Concomitant]
     Active Substance: ALLOPURINOL
  11. CALCIUM AND VITAMIN D [Concomitant]
     Active Substance: CALCIUM\VITAMIN D
  12. CHLORHEXIDINE [Concomitant]
     Active Substance: CHLORHEXIDINE
  13. MAGNESIUM [Concomitant]
     Active Substance: MAGNESIUM
  14. RITUXAN [Concomitant]
     Active Substance: RITUXIMAB
  15. TRIMETHOPRIM SULFAMETHOXAZOLE [Concomitant]
     Active Substance: SULFAMETHOXAZOLE\TRIMETHOPRIM
  16. DEXAMETHASONE. [Concomitant]
     Active Substance: DEXAMETHASONE
  17. CYCLOPHOSPHAMIDE. [Suspect]
     Active Substance: CYCLOPHOSPHAMIDE
     Indication: EPSTEIN-BARR VIRUS ASSOCIATED LYMPHOPROLIFERATIVE DISORDER
     Dosage: 750 MG
     Route: 042
  18. ACETAMINOPHEN. [Concomitant]
     Active Substance: ACETAMINOPHEN
  19. AMLODIPINE [Concomitant]
     Active Substance: AMLODIPINE BESYLATE
  20. FAMOTIDINE. [Concomitant]
     Active Substance: FAMOTIDINE
  21. FUROSEMIDE. [Concomitant]
     Active Substance: FUROSEMIDE
  22. RANITIDINE. [Concomitant]
     Active Substance: RANITIDINE
  23. BUSULFAN. [Suspect]
     Active Substance: BUSULFAN
     Indication: COMBINED IMMUNODEFICIENCY
     Dosage: 130 MG
     Route: 042
  24. CEFTAZIDIME. [Concomitant]
     Active Substance: CEFTAZIDIME
  25. DIPHENHYDRAMINE. [Concomitant]
     Active Substance: DIPHENHYDRAMINE
  26. NITAZOXANIDE [Concomitant]
     Active Substance: NITAZOXANIDE
  27. PREDNISONE. [Concomitant]
     Active Substance: PREDNISONE
  28. PROBENECID. [Concomitant]
     Active Substance: PROBENECID
  29. VISTIDE [Concomitant]
     Active Substance: CIDOFOVIR
  30. DIMENHYDRINATE. [Concomitant]
     Active Substance: DIMENHYDRINATE
  31. ZINC. [Concomitant]
     Active Substance: ZINC
  32. MYCAMINE [Concomitant]
     Active Substance: MICAFUNGIN SODIUM
  33. POTASSIUM [Concomitant]
     Active Substance: POTASSIUM
  34. VINCRISTINE SULFATE. [Suspect]
     Active Substance: VINCRISTINE SULFATE
     Indication: EPSTEIN-BARR VIRUS ASSOCIATED LYMPHOPROLIFERATIVE DISORDER
     Dosage: 1.4 MG
     Route: 042
  35. VINCRISTINE SULFATE. [Suspect]
     Active Substance: VINCRISTINE SULFATE
     Dosage: 1.4 MG
     Route: 042
  36. ACYCLOVIR [ACICLOVIR] [Concomitant]
     Active Substance: ACYCLOVIR
  37. EUCERIN [Concomitant]
     Active Substance: ENSULIZOLE\EUCERIN\OCTINOXATE\OCTISALATE\TITANIUM DIOXIDE\ZINC OXIDE
  38. HYDROCORTISONE. [Concomitant]
     Active Substance: HYDROCORTISONE
  39. KETOCONAZOLE. [Concomitant]
     Active Substance: KETOCONAZOLE
  40. LEVETIRACETAM. [Concomitant]
     Active Substance: LEVETIRACETAM
     Route: 065
  41. METHYLPREDNISOLONE. [Concomitant]
     Active Substance: METHYLPREDNISOLONE

REACTIONS (1)
  - Aplastic anaemia [Recovered/Resolved]
